FAERS Safety Report 5747439-X (Version None)
Quarter: 2008Q2

REPORT INFORMATION
  Report Type: 
  Country: None (occurrence: None)
  Receive Date: 20080523
  Receipt Date: 20080523
  Transmission Date: 20081010
  Serious: Yes (Life-Threatening, Hospitalization)
  Sender: FDA-Public Use
  Company Number: None

PATIENT
  Age: 69 Year
  Sex: Female
  Weight: 58 kg

DRUGS (2)
  1. HEPARIN SODIUM [Suspect]
     Indication: ANGIOGRAM
     Dosage: 6-12 ML/HR - PER PTT DAILY IV DRIP
     Route: 041
     Dates: start: 20070619, end: 20070628
  2. HEPARIN SODIUM [Suspect]
     Indication: STENT PLACEMENT
     Dosage: 6-12 ML/HR - PER PTT DAILY IV DRIP
     Route: 041
     Dates: start: 20070619, end: 20070628

REACTIONS (1)
  - HEPARIN-INDUCED THROMBOCYTOPENIA [None]
